APPROVED DRUG PRODUCT: LENALIDOMIDE
Active Ingredient: LENALIDOMIDE
Strength: 5MG
Dosage Form/Route: CAPSULE;ORAL
Application: A214398 | Product #002 | TE Code: AB
Applicant: LUPIN LTD
Approved: Sep 16, 2025 | RLD: No | RS: No | Type: RX